FAERS Safety Report 10926825 (Version 6)
Quarter: 2016Q2

REPORT INFORMATION
  Report Type: Report from Study
  Country: FR (occurrence: FR)
  Receive Date: 20150318
  Receipt Date: 20160419
  Transmission Date: 20160815
  Serious: Yes (Hospitalization, Other)
  Sender: FDA-Public Use
  Company Number: FR-ROCHE-1440269

PATIENT
  Age: 74 Year
  Sex: Male
  Weight: 95 kg

DRUGS (8)
  1. NOVOMIX 30 [Concomitant]
     Active Substance: INSULIN ASPART
     Route: 065
     Dates: start: 20140131, end: 20140811
  2. BENDAMUSTINE [Suspect]
     Active Substance: BENDAMUSTINE
     Dosage: C1D2, MOST RECENT DOSE PRIOR TO WORSENING DIABETES, FEBRILE NEUTROPENIA AND HERPES ZOSTER SCAPULA: 2
     Route: 041
     Dates: start: 20140124, end: 20140202
  3. NOVOMIX 30 [Concomitant]
     Active Substance: INSULIN ASPART
     Indication: TYPE 1 DIABETES MELLITUS
     Route: 048
     Dates: start: 20140201, end: 20140811
  4. OBINUTUZUMAB [Suspect]
     Active Substance: OBINUTUZUMAB
     Indication: CHRONIC LYMPHOCYTIC LEUKAEMIA
     Dosage: C1D1?DATE OF LAST DOSE PRIOR TO SAE : 31/JAN/2014
     Route: 041
     Dates: start: 20140123, end: 20140123
  5. BENDAMUSTINE [Suspect]
     Active Substance: BENDAMUSTINE
     Indication: CHRONIC LYMPHOCYTIC LEUKAEMIA
     Dosage: C1D1
     Route: 041
     Dates: start: 20140123, end: 20140123
  6. OBINUTUZUMAB [Suspect]
     Active Substance: OBINUTUZUMAB
     Dosage: C1D2
     Route: 041
     Dates: start: 20140124, end: 20140124
  7. OBINUTUZUMAB [Suspect]
     Active Substance: OBINUTUZUMAB
     Dosage: C1D8 (100 MG/40 ML). ON 31/JAN/2014, LAST DOSE PRIOR TO ONSET OF SERIOUS ADVERSE EVENT WAS RECEIVED.
     Route: 041
     Dates: start: 20140131, end: 20140202
  8. GRANOCYTE 34 [Concomitant]
     Active Substance: LENOGRASTIM
     Dosage: 1 AMP
     Route: 065
     Dates: start: 20140130, end: 20140203

REACTIONS (5)
  - Febrile neutropenia [Recovered/Resolved]
  - Herpes zoster [Recovered/Resolved]
  - Femoral neck fracture [Recovered/Resolved]
  - Febrile neutropenia [Unknown]
  - Diabetes mellitus [Recovered/Resolved]

NARRATIVE: CASE EVENT DATE: 20140131
